FAERS Safety Report 16719236 (Version 2)
Quarter: 2019Q4

REPORT INFORMATION
  Report Type: Spontaneous
  Country: US (occurrence: US)
  Receive Date: 20190820
  Receipt Date: 20191003
  Transmission Date: 20200122
  Serious: No
  Sender: FDA-Public Use
  Company Number: US-BAYER-2019-152147

PATIENT
  Age: 58 Year
  Sex: Female

DRUGS (6)
  1. MILK OF MAGNESIA ORIGINAL [Suspect]
     Active Substance: MAGNESIUM HYDROXIDE
     Indication: GASTROINTESTINAL DISORDER
     Dosage: UNK
  2. BENEFIBER [Suspect]
     Active Substance: STARCH, WHEAT
  3. PSYLLIUM HYDROPHILIC MUCILLOID [Suspect]
     Active Substance: PSYLLIUM HUSK
     Dosage: UNK
  4. MIRALAX [Suspect]
     Active Substance: POLYETHYLENE GLYCOL 3350
     Indication: GASTROINTESTINAL MOTILITY DISORDER
     Dosage: UNK
     Dates: start: 201908
  5. DULCOLAX (BISACODYL) [Suspect]
     Active Substance: BISACODYL
  6. MIRALAX [Suspect]
     Active Substance: POLYETHYLENE GLYCOL 3350
     Indication: GASTROINTESTINAL DISORDER

REACTIONS (8)
  - Off label use [None]
  - Muscle spasms [Unknown]
  - Malaise [Unknown]
  - Abdominal distension [None]
  - Drug effective for unapproved indication [None]
  - Drug ineffective [Unknown]
  - Nausea [Unknown]
  - Flatulence [None]
